FAERS Safety Report 13008026 (Version 2)
Quarter: 2016Q4

REPORT INFORMATION
  Report Type: Spontaneous
  Country: JP (occurrence: JP)
  Receive Date: 20161208
  Receipt Date: 20161220
  Transmission Date: 20170207
  Serious: Yes (Death, Life-Threatening, Hospitalization, Other)
  Sender: FDA-Public Use
  Company Number: JP-BAXTER-2016BAX061307

PATIENT
  Age: 5 Decade
  Sex: Female

DRUGS (2)
  1. ENDOXAN 1G [Suspect]
     Active Substance: CYCLOPHOSPHAMIDE
     Indication: BREAST CANCER
     Dosage: ADJUVANT THERAPY, INITIAL DOSE
     Route: 041
     Dates: start: 20161119, end: 20161119
  2. DOXORUBICIN HYDROCHLORIDE. [Suspect]
     Active Substance: DOXORUBICIN HYDROCHLORIDE
     Indication: BREAST CANCER
     Dosage: ADJUVANT THERAPY, INITIAL DOSE
     Route: 041
     Dates: start: 20161119, end: 20161119

REACTIONS (3)
  - Leukoencephalopathy [Fatal]
  - Brain death [Unknown]
  - Hyperammonaemia [Fatal]

NARRATIVE: CASE EVENT DATE: 20161124
